FAERS Safety Report 5073078-2 (Version None)
Quarter: 2006Q3

REPORT INFORMATION
  Report Type: 
  Country: None (occurrence: None)
  Receive Date: 20060802
  Receipt Date: 20060714
  Transmission Date: 20061208
  Serious: Yes (Death, Hospitalization, Other)
  Sender: FDA-Public Use
  Company Number: 163-21880-06020237

PATIENT
  Age: 68 Year
  Sex: Male

DRUGS (11)
  1. REVLIMID [Suspect]
     Indication: MYELOID LEUKAEMIA
     Dosage: 10 MG, 1 IN 1 D, ORAL
     Route: 048
     Dates: start: 20060119, end: 20060101
  2. MEGACE [Concomitant]
  3. URSODIOL (URSODEOXYCHOLIC ACID) [Concomitant]
  4. EFFEXOR [Concomitant]
  5. DETROL LA [Concomitant]
  6. PERIDEX (CHLORPHEXIDINE GLUCONATE) [Concomitant]
  7. NYSTATIN [Concomitant]
  8. PROCRIT [Concomitant]
  9. NEU0POGEN (FILGRASTIM) [Concomitant]
  10. FLAGYL [Concomitant]
  11. LOMOTIL [Concomitant]

REACTIONS (26)
  - ALANINE AMINOTRANSFERASE INCREASED [None]
  - ASPARTATE AMINOTRANSFERASE INCREASED [None]
  - ASTHENIA [None]
  - BLOOD ALBUMIN DECREASED [None]
  - BLOOD ALKALINE PHOSPHATASE INCREASED [None]
  - BLOOD BICARBONATE DECREASED [None]
  - BLOOD BILIRUBIN INCREASED [None]
  - BLOOD UREA INCREASED [None]
  - CANDIDIASIS [None]
  - DEHYDRATION [None]
  - DIARRHOEA [None]
  - DYSPNOEA [None]
  - FEBRILE NEUTROPENIA [None]
  - HEPATIC ENZYME INCREASED [None]
  - HYPOCALCAEMIA [None]
  - JAUNDICE [None]
  - LEUKAEMIA RECURRENT [None]
  - MYELOID LEUKAEMIA [None]
  - OROPHARYNGEAL CANDIDIASIS [None]
  - PANCYTOPENIA [None]
  - PERIRECTAL ABSCESS [None]
  - PETECHIAE [None]
  - PRURITUS [None]
  - RASH [None]
  - REFUSAL OF TREATMENT BY PATIENT [None]
  - SEPSIS [None]
